FAERS Safety Report 14756093 (Version 1)
Quarter: 2018Q2

REPORT INFORMATION
  Report Type: Spontaneous
  Country: NL (occurrence: DE)
  Receive Date: 20180413
  Receipt Date: 20180413
  Transmission Date: 20180711
  Serious: Yes (Other)
  Sender: FDA-Public Use
  Company Number: DE-TEVA-2018-DE-881657

PATIENT
  Age: 50 Year
  Sex: Female

DRUGS (2)
  1. KENTERA 3.9MG/24H TRANSDERMALES PFLASTER [Suspect]
     Active Substance: OXYBUTYNIN
     Indication: PRODUCT USED FOR UNKNOWN INDICATION
     Route: 062
  2. ENALAPRIL W/HYDROCHLOROTHIAZIDE [Concomitant]
     Active Substance: ENALAPRIL\HYDROCHLOROTHIAZIDE

REACTIONS (7)
  - Off label use [Unknown]
  - Circulatory collapse [Unknown]
  - Panic reaction [Unknown]
  - Dizziness [Unknown]
  - Muscular weakness [Unknown]
  - Hypoaesthesia [Unknown]
  - Paraesthesia [Unknown]
